FAERS Safety Report 9167890 (Version 2)
Quarter: 2013Q2

REPORT INFORMATION
  Report Type: Spontaneous
  Country: GB (occurrence: None)
  Receive Date: 20130305
  Receipt Date: 20130402
  Transmission Date: 20140414
  Serious: Yes (Other)
  Sender: FDA-Public Use
  Company Number: AUR-APL-2013-01778

PATIENT
  Age: 59 Year
  Sex: Female

DRUGS (3)
  1. RIBAVIRIN [Suspect]
     Indication: HEPATITIS C
     Dosage: UNKNOWN
     Dates: start: 201212
  2. INTERFERON [Suspect]
     Indication: HEPATITIS C
     Dosage: UNKNOWN
     Dates: start: 201212
  3. ZAPONEX [Suspect]
     Indication: SCHIZOPHRENIA
     Dosage: 400 MG (200 MG, 2 IN 1 D) , ORAL
     Route: 048
     Dates: start: 20040811, end: 20130128

REACTIONS (3)
  - Hepatitis C [None]
  - Neutrophil count decreased [None]
  - Leukopenia [None]
